FAERS Safety Report 24785593 (Version 1)
Quarter: 2024Q4

REPORT INFORMATION
  Report Type: Spontaneous
  Country: US (occurrence: None)
  Receive Date: 20241227
  Receipt Date: 20241227
  Transmission Date: 20250114
  Serious: Yes (Other)
  Sender: Public
  Company Number: None

PATIENT
  Age: 66 Year
  Sex: Male
  Weight: 90 kg

DRUGS (8)
  1. PRAVASTATIN [Suspect]
     Active Substance: PRAVASTATIN
     Indication: Blood cholesterol abnormal
     Dates: start: 20180202, end: 20240701
  2. PRAVASTATIN [Suspect]
     Active Substance: PRAVASTATIN
     Indication: Blood triglycerides abnormal
  3. METOPROLOL [Concomitant]
     Active Substance: METOPROLOL
  4. LOSARTAN [Concomitant]
     Active Substance: LOSARTAN
  5. Mens 1 a day [Concomitant]
  6. B12 [Concomitant]
  7. FOLIC ACID [Concomitant]
     Active Substance: FOLIC ACID
  8. HERBALS\TURMERIC [Concomitant]
     Active Substance: HERBALS\TURMERIC

REACTIONS (4)
  - Blister [None]
  - Paraesthesia [None]
  - Neuropathy peripheral [None]
  - Therapy cessation [None]

NARRATIVE: CASE EVENT DATE: 20240601
